FAERS Safety Report 23936052 (Version 1)
Quarter: 2024Q2

REPORT INFORMATION
  Report Type: Spontaneous
  Country: JP (occurrence: JP)
  Receive Date: 20240604
  Receipt Date: 20240604
  Transmission Date: 20240715
  Serious: Yes (Hospitalization, Other)
  Sender: FDA-Public Use
  Company Number: JP-MSD-M2024-20441

PATIENT
  Age: 72 Year
  Sex: Male

DRUGS (3)
  1. KEYTRUDA [Suspect]
     Active Substance: PEMBROLIZUMAB
     Indication: Oesophageal squamous cell carcinoma stage IV
     Dosage: 400 MILLIGRAM, EVERY 6 WEEKS
     Route: 041
  2. CISPLATIN [Concomitant]
     Active Substance: CISPLATIN
     Indication: Oesophageal squamous cell carcinoma stage IV
     Dosage: 60 MILLIGRAM/SQ. METER, Q3W
     Route: 065
  3. FLUOROURACIL [Concomitant]
     Active Substance: FLUOROURACIL
     Indication: Oesophageal squamous cell carcinoma stage IV
     Dosage: 4000 MILLIGRAM/SQ. METER, Q3W
     Route: 065

REACTIONS (5)
  - Malignant neoplasm progression [Unknown]
  - Interstitial lung disease [Unknown]
  - Platelet count decreased [Unknown]
  - Oedema [Unknown]
  - Eastern Cooperative Oncology Group performance status worsened [Unknown]
